FAERS Safety Report 9120197 (Version 1)
Quarter: 2013Q1

REPORT INFORMATION
  Report Type: Spontaneous
  Country: US (occurrence: US)
  Receive Date: 20130226
  Receipt Date: 20130226
  Transmission Date: 20140127
  Serious: No
  Sender: FDA-Public Use
  Company Number: US-PFIZER INC-2013068041

PATIENT
  Age: 37 Year
  Sex: Male
  Weight: 85.26 kg

DRUGS (1)
  1. CHANTIX [Suspect]
     Indication: SMOKING CESSATION THERAPY
     Dosage: 1 MG, UNK
     Dates: start: 201301, end: 20130207

REACTIONS (1)
  - Tongue disorder [Not Recovered/Not Resolved]
